FAERS Safety Report 5068298-7 (Version None)
Quarter: 2006Q3

REPORT INFORMATION
  Report Type: 
  Country: None (occurrence: None)
  Receive Date: 20060720
  Receipt Date: 20060707
  Transmission Date: 20061208
  Serious: Yes (Other)
  Sender: FDA-Public Use
  Company Number: 2006BH010649

PATIENT
  Sex: Female

DRUGS (1)
  1. BUMINATE 5% [Suspect]
     Indication: PLASMAPHERESIS

REACTIONS (2)
  - FATIGUE [None]
  - HEPATITIS C VIRUS [None]
